FAERS Safety Report 9958665 (Version 2)
Quarter: 2014Q2

REPORT INFORMATION
  Report Type: Spontaneous
  Country: US (occurrence: US)
  Receive Date: 20140305
  Receipt Date: 20140404
  Transmission Date: 20141212
  Serious: Yes (Hospitalization)
  Sender: FDA-Public Use
  Company Number: US-AMGEN-USASP2014015206

PATIENT
  Age: 82 Year
  Sex: Female

DRUGS (2)
  1. ENBREL [Suspect]
     Indication: RHEUMATOID ARTHRITIS
     Dosage: 25 MG, 2 TIMES/WK
     Route: 065
     Dates: start: 20031101, end: 201402
  2. PLAQUENIL                          /00072602/ [Concomitant]
     Dosage: 200 MG, ONCE DAILY FOR ONE WEEK

REACTIONS (17)
  - Head injury [Recovered/Resolved]
  - Knee arthroplasty [Recovered/Resolved]
  - Skin lesion [Not Recovered/Not Resolved]
  - Skin discolouration [Not Recovered/Not Resolved]
  - Pyrexia [Recovered/Resolved]
  - Generalised erythema [Not Recovered/Not Resolved]
  - Purulent discharge [Not Recovered/Not Resolved]
  - Eye swelling [Not Recovered/Not Resolved]
  - Epistaxis [Not Recovered/Not Resolved]
  - Pruritus [Not Recovered/Not Resolved]
  - Papule [Not Recovered/Not Resolved]
  - Vitamin B12 decreased [Not Recovered/Not Resolved]
  - Thyroid disorder [Not Recovered/Not Resolved]
  - Blood iron decreased [Not Recovered/Not Resolved]
  - Family stress [Not Recovered/Not Resolved]
  - Bacterial infection [Not Recovered/Not Resolved]
  - Herpes zoster [Not Recovered/Not Resolved]
